FAERS Safety Report 17933375 (Version 3)
Quarter: 2020Q3

REPORT INFORMATION
  Report Type: Spontaneous
  Country: ES (occurrence: ES)
  Receive Date: 20200623
  Receipt Date: 20200717
  Transmission Date: 20201103
  Serious: Yes (Other)
  Sender: FDA-Public Use
  Company Number: ES-PFIZER INC-2020239010

PATIENT
  Age: 12 Year
  Sex: Female

DRUGS (12)
  1. GARDASIL [Suspect]
     Active Substance: HUMAN PAPILLOMAVIRUS QUADRIVALENT (TYPES 6, 11, 16, AND 18) VACCINE, RECOMBINANT
     Indication: LARYNGEAL PAPILLOMA
     Dosage: UNK
  2. CELECOXIB. [Suspect]
     Active Substance: CELECOXIB
     Indication: RESPIRATORY PAPILLOMA
     Dosage: 200 MG, DAILY
  3. INTERFERON ALFA?2B [Suspect]
     Active Substance: INTERFERON ALFA-2B
     Indication: RESPIRATORY PAPILLOMA
     Dosage: 4500000 IU, ALTERNATE DAY
     Route: 058
     Dates: start: 200112, end: 200201
  4. CIDOFOVIR. [Suspect]
     Active Substance: CIDOFOVIR
     Indication: RESPIRATORY PAPILLOMA
     Dosage: UNK
  5. ERLOTINIB HYDROCHLORIDE. [Suspect]
     Active Substance: ERLOTINIB HYDROCHLORIDE
     Indication: LARYNGEAL PAPILLOMA
     Dosage: UNK
  6. CELECOXIB. [Suspect]
     Active Substance: CELECOXIB
     Indication: RESPIRATORY PAPILLOMA
  7. GARDASIL [Suspect]
     Active Substance: HUMAN PAPILLOMAVIRUS QUADRIVALENT (TYPES 6, 11, 16, AND 18) VACCINE, RECOMBINANT
     Indication: RESPIRATORY PAPILLOMA
     Dosage: UNK
     Dates: start: 200707, end: 200707
  8. ERLOTINIB HYDROCHLORIDE. [Suspect]
     Active Substance: ERLOTINIB HYDROCHLORIDE
     Indication: RESPIRATORY PAPILLOMA
     Dosage: 150 MG, DAILY
  9. INTERFERON ALFA?2B [Suspect]
     Active Substance: INTERFERON ALFA-2B
     Indication: LARYNGEAL PAPILLOMA
     Dosage: UNK
  10. CIDOFOVIR. [Suspect]
     Active Substance: CIDOFOVIR
     Indication: LARYNGEAL PAPILLOMA
     Dosage: UNK
  11. CELECOXIB. [Suspect]
     Active Substance: CELECOXIB
     Indication: LARYNGEAL PAPILLOMA
     Dosage: 200 MG, 1X/DAY
     Route: 042
  12. CELECOXIB. [Suspect]
     Active Substance: CELECOXIB
     Indication: LARYNGEAL PAPILLOMA
     Dosage: UNK

REACTIONS (7)
  - Off label use [Unknown]
  - Laryngeal papilloma [Recovering/Resolving]
  - Respiratory papilloma [Recovering/Resolving]
  - Papilloma viral infection [Recovering/Resolving]
  - Disease recurrence [Recovering/Resolving]
  - Off label use [Unknown]
  - Product use in unapproved indication [Unknown]

NARRATIVE: CASE EVENT DATE: 200707
